FAERS Safety Report 9820349 (Version 4)
Quarter: 2014Q3

REPORT INFORMATION
  Report Type: Spontaneous
  Country: US (occurrence: None)
  Receive Date: 20140114
  Receipt Date: 20140828
  Transmission Date: 20150326
  Serious: Yes (Other)
  Sender: FDA-Public Use
  Company Number: ADR-2014-00050

PATIENT
  Age: 87 Year
  Sex: Male

DRUGS (2)
  1. BACLOFEN. [Suspect]
     Active Substance: BACLOFEN
     Indication: MUSCLE SPASTICITY
     Dosage: 99, 104.5 SEE B5
  2. BOTOX [Suspect]
     Active Substance: ONABOTULINUMTOXINA

REACTIONS (7)
  - Muscle spasticity [None]
  - Device issue [None]
  - Oral disorder [None]
  - Hypotonia [None]
  - Feeling abnormal [None]
  - Sensory disturbance [None]
  - Musculoskeletal stiffness [None]
